FAERS Safety Report 14439665 (Version 1)
Quarter: 2018Q1

REPORT INFORMATION
  Report Type: Spontaneous
  Country: IN (occurrence: IN)
  Receive Date: 20180125
  Receipt Date: 20180125
  Transmission Date: 20180509
  Serious: Yes (Other)
  Sender: FDA-Public Use
  Company Number: IN-JNJFOC-20180126769

PATIENT
  Age: 61 Year
  Sex: Male

DRUGS (5)
  1. ACTRAPID [Concomitant]
     Active Substance: INSULIN HUMAN
     Indication: DIABETES MELLITUS
     Route: 058
  2. AMOXICILLIN. [Concomitant]
     Active Substance: AMOXICILLIN
     Route: 042
  3. OMEPRAZOLE. [Concomitant]
     Active Substance: OMEPRAZOLE
     Route: 065
  4. TRAMADOL HYDROCHLORIDE. [Suspect]
     Active Substance: TRAMADOL HYDROCHLORIDE
     Indication: PRODUCT USED FOR UNKNOWN INDICATION
     Dosage: DURATION OF DRUG ADMINISTRATION: 1 DAY
     Route: 042
  5. TRAMADOL HYDROCHLORIDE. [Suspect]
     Active Substance: TRAMADOL HYDROCHLORIDE
     Indication: PRODUCT USED FOR UNKNOWN INDICATION
     Dosage: DURATION OF DRUG ADMINISTRATION: 3 DAYS
     Route: 048

REACTIONS (4)
  - Loss of personal independence in daily activities [Unknown]
  - Sleep disorder [Unknown]
  - Abdominal distension [Unknown]
  - Hiccups [Recovered/Resolved]
